FAERS Safety Report 16108663 (Version 1)
Quarter: 2019Q1

REPORT INFORMATION
  Report Type: Spontaneous
  Country: SE (occurrence: SE)
  Receive Date: 20190323
  Receipt Date: 20190323
  Transmission Date: 20190418
  Serious: Yes (Other)
  Sender: FDA-Public Use
  Company Number: SE-ACCORD-115315

PATIENT
  Age: 31 Year
  Sex: Female
  Weight: 75 kg

DRUGS (2)
  1. LETROZOLE. [Suspect]
     Active Substance: LETROZOLE
     Indication: POLYCYSTIC OVARIES
     Dosage: 1 TABLET IN FIVE DAYS
     Dates: start: 2018, end: 20181111
  2. SIFROL [Concomitant]
     Active Substance: PRAMIPEXOLE
     Dates: start: 20110101, end: 20181118

REACTIONS (3)
  - Suicidal ideation [Recovered/Resolved with Sequelae]
  - Anxiety [Recovered/Resolved with Sequelae]
  - Off label use [Unknown]

NARRATIVE: CASE EVENT DATE: 20181110
